FAERS Safety Report 5121945-3 (Version None)
Quarter: 2006Q4

REPORT INFORMATION
  Report Type: 
  Country: None (occurrence: None)
  Receive Date: 20061006
  Receipt Date: 20060926
  Transmission Date: 20070319
  Serious: Yes (Hospitalization)
  Sender: FDA-Public Use
  Company Number: US-JNJFOC-20060806126

PATIENT
  Sex: Female
  Weight: 114.31 kg

DRUGS (1)
  1. REMICADE [Suspect]
     Indication: DRUG USE FOR UNKNOWN INDICATION
     Dosage: DOSE: 7 VIALS
     Route: 042

REACTIONS (9)
  - ANXIETY [None]
  - DYSPNOEA [None]
  - ERYTHEMA [None]
  - FLUSHING [None]
  - INFUSION RELATED REACTION [None]
  - NERVOUSNESS [None]
  - PRURITUS [None]
  - URTICARIA [None]
  - VENTRICULAR EXTRASYSTOLES [None]
